FAERS Safety Report 14137732 (Version 1)
Quarter: 2017Q4

REPORT INFORMATION
  Report Type: Report from Study
  Country: None (occurrence: CO)
  Receive Date: 20171027
  Receipt Date: 20171027
  Transmission Date: 20180321
  Serious: Yes (Death)
  Sender: FDA-Public Use
  Company Number: CO-ABBVIE-17S-036-2144297-00

PATIENT
  Age: 79 Year
  Sex: Male
  Weight: 75 kg

DRUGS (1)
  1. ZEMPLAR [Suspect]
     Active Substance: PARICALCITOL
     Indication: HYPERPARATHYROIDISM SECONDARY
     Route: 042
     Dates: start: 20130731, end: 20170925

REACTIONS (5)
  - Hypotension [Fatal]
  - Hypothermia [Fatal]
  - Sepsis [Fatal]
  - Inflammation [Fatal]
  - Pyrexia [Fatal]

NARRATIVE: CASE EVENT DATE: 20171022
